FAERS Safety Report 5090831-X (Version None)
Quarter: 2006Q3

REPORT INFORMATION
  Report Type: 
  Country: None (occurrence: None)
  Receive Date: 20060823
  Receipt Date: 20060814
  Transmission Date: 20061208
  Serious: Yes (Life-Threatening, Hospitalization)
  Sender: FDA-Public Use
  Company Number: 2006RR-03310

PATIENT
  Age: 55 Year
  Sex: Male
  Weight: 80 kg

DRUGS (5)
  1. METFORMIN HCL [Suspect]
     Indication: DIABETES MELLITUS NON-INSULIN-DEPENDENT
     Dosage: ORAL
     Route: 048
  2. ASPIRIN [Concomitant]
  3. LOSARTAN POTASSIUM [Concomitant]
  4. RAMIPRIL [Concomitant]
  5. SILDENAFIL CITRATE [Concomitant]

REACTIONS (5)
  - CARDIAC ARREST [None]
  - CONFUSIONAL STATE [None]
  - GLASGOW COMA SCALE ABNORMAL [None]
  - LABORATORY TEST ABNORMAL [None]
  - LETHARGY [None]
